FAERS Safety Report 14872423 (Version 1)
Quarter: 2018Q2

REPORT INFORMATION
  Report Type: Spontaneous
  Country: FR (occurrence: FR)
  Receive Date: 20180510
  Receipt Date: 20180510
  Transmission Date: 20180711
  Serious: Yes (Hospitalization, Other)
  Sender: FDA-Public Use
  Company Number: FR-MERCK KGAA-2047514

PATIENT
  Age: 49 Year
  Sex: Female

DRUGS (3)
  1. LEVOTHYROX NF [Suspect]
     Active Substance: LEVOTHYROXINE SODIUM
     Dates: start: 20170727
  2. NOVOTHYROX [Suspect]
     Active Substance: LEVOTHYROXINE SODIUM
     Indication: PRODUCT USED FOR UNKNOWN INDICATION
     Dates: start: 2017
  3. LEVOTHYROX NF [Suspect]
     Active Substance: LEVOTHYROXINE SODIUM
     Dates: start: 20170603

REACTIONS (35)
  - Dehydration [None]
  - Vulvovaginal pruritus [None]
  - Libido decreased [None]
  - Nail discolouration [None]
  - Pruritus generalised [None]
  - Hypertension [Not Recovered/Not Resolved]
  - Hypothyroidism [None]
  - Gastrointestinal disorder [None]
  - Blood potassium increased [None]
  - Back pain [None]
  - Anger [None]
  - Visual impairment [None]
  - Vision blurred [None]
  - Muscle disorder [None]
  - Affect lability [None]
  - Crying [None]
  - Eczema [None]
  - Impaired driving ability [None]
  - Heart rate increased [None]
  - Headache [None]
  - Hypoglycaemia [None]
  - Loss of personal independence in daily activities [None]
  - Hyperthyroidism [None]
  - Malaise [None]
  - Dizziness [Not Recovered/Not Resolved]
  - Gastrointestinal pain [None]
  - Depressed mood [None]
  - Feeling abnormal [None]
  - Tinnitus [None]
  - Acne [None]
  - Housebound [None]
  - Abdominal pain upper [None]
  - Skin discolouration [None]
  - Asthenia [None]
  - Pain [None]

NARRATIVE: CASE EVENT DATE: 20170602
